FAERS Safety Report 13940784 (Version 1)
Quarter: 2017Q3

REPORT INFORMATION
  Report Type: Spontaneous
  Country: JP (occurrence: JP)
  Receive Date: 20170906
  Receipt Date: 20170906
  Transmission Date: 20171127
  Serious: Yes (Other)
  Sender: FDA-Public Use
  Company Number: JP-PFIZER INC-2017380232

PATIENT

DRUGS (1)
  1. INLYTA [Suspect]
     Active Substance: AXITINIB
     Dosage: UNK

REACTIONS (20)
  - Hypertension [Unknown]
  - Swelling face [Unknown]
  - Cheilitis [Unknown]
  - Arthralgia [Unknown]
  - Stomatitis [Unknown]
  - Fatigue [Unknown]
  - Intervertebral disc protrusion [Unknown]
  - Decreased appetite [Unknown]
  - Diarrhoea [Unknown]
  - Spinal compression fracture [Unknown]
  - Protein urine present [Unknown]
  - Neoplasm progression [Unknown]
  - Skin exfoliation [Unknown]
  - Cholelithiasis [Unknown]
  - Muscle spasms [Unknown]
  - Second primary malignancy [Unknown]
  - Hypoaesthesia [Unknown]
  - Cervix carcinoma [Unknown]
  - Peripheral swelling [Unknown]
  - Weight decreased [Unknown]
